FAERS Safety Report 12210798 (Version 2)
Quarter: 2016Q2

REPORT INFORMATION
  Report Type: Other
  Country: US (occurrence: US)
  Receive Date: 20160325
  Receipt Date: 20160404
  Transmission Date: 20160815
  Serious: No
  Sender: FDA-Public Use
  Company Number: US-SHIRE-US201603575

PATIENT
  Age: 46 Year
  Sex: Male

DRUGS (2)
  1. LIALDA [Suspect]
     Active Substance: MESALAMINE
     Dosage: 1.2 G, 4X/DAY:QID
     Route: 048
  2. LIALDA [Suspect]
     Active Substance: MESALAMINE
     Indication: PRODUCT USED FOR UNKNOWN INDICATION
     Dosage: 1.2 G, 1X/DAY:QD
     Route: 048

REACTIONS (2)
  - Condition aggravated [Unknown]
  - Inappropriate schedule of drug administration [Unknown]
